FAERS Safety Report 17372745 (Version 2)
Quarter: 2020Q1

REPORT INFORMATION
  Report Type: Spontaneous
  Country: JP (occurrence: JP)
  Receive Date: 20200205
  Receipt Date: 20200224
  Transmission Date: 20200409
  Serious: Yes (Hospitalization)
  Sender: FDA-Public Use
  Company Number: JP-009507513-2002JPN000201J

PATIENT
  Age: 73 Year
  Sex: Male
  Weight: 76 kg

DRUGS (7)
  1. PROMAC [Concomitant]
     Active Substance: NITROFURANTOIN
     Dosage: 75 MILLIGRAM, QD
     Route: 048
  2. ACINON [Concomitant]
     Active Substance: NIZATIDINE
     Dosage: 150 MILLIGRAM, BID
     Route: 048
  3. PEMETREXED DISODIUM [Concomitant]
     Active Substance: PEMETREXED DISODIUM
     Dosage: 400 MILLIGRAM, Q3W
     Route: 041
     Dates: start: 20191101, end: 20200110
  4. FUROSEMIDE. [Concomitant]
     Active Substance: FUROSEMIDE
     Dosage: 10 MILLIGRAM, QD
     Route: 048
  5. CARBOPLATIN. [Concomitant]
     Active Substance: CARBOPLATIN
     Dosage: 800 MILLIGRAM, Q3W
     Route: 041
     Dates: start: 20191101, end: 20200110
  6. KEYTRUDA [Suspect]
     Active Substance: PEMBROLIZUMAB
     Indication: NON-SMALL CELL LUNG CANCER
     Dosage: 200 MILLIGRAM, Q3W
     Route: 041
     Dates: start: 20191101, end: 20200110
  7. AMLODIPINE [Concomitant]
     Active Substance: AMLODIPINE BESYLATE
     Dosage: 2 DOSAGE FORM, QD
     Route: 048

REACTIONS (1)
  - Platelet count decreased [Not Recovered/Not Resolved]

NARRATIVE: CASE EVENT DATE: 20200124
